FAERS Safety Report 21719912 (Version 1)
Quarter: 2022Q4

REPORT INFORMATION
  Report Type: Spontaneous
  Country: FR (occurrence: None)
  Receive Date: 20221213
  Receipt Date: 20221213
  Transmission Date: 20230113
  Serious: Yes (Other)
  Sender: FDA-Public Use
  Company Number: FR-Orion Corporation ORION PHARMA-TREX2022-0184

PATIENT
  Age: 76 Year
  Sex: Male

DRUGS (3)
  1. METHOTREXATE [Suspect]
     Active Substance: METHOTREXATE
     Indication: Pemphigoid
     Route: 065
  2. UNSPECIFIED INGREDIENT [Concomitant]
     Active Substance: UNSPECIFIED INGREDIENT
     Indication: Pemphigoid
     Route: 065
  3. SUPERPOTENT TOPICAL STEROIDS [Concomitant]
     Indication: Pemphigoid
     Route: 061

REACTIONS (3)
  - Pancytopenia [Unknown]
  - Product use in unapproved indication [Unknown]
  - Drug intolerance [Unknown]
